FAERS Safety Report 17174411 (Version 1)
Quarter: 2019Q4

REPORT INFORMATION
  Report Type: Report from Study
  Country: US (occurrence: US)
  Receive Date: 20191219
  Receipt Date: 20191219
  Transmission Date: 20200122
  Serious: Yes (Other)
  Sender: FDA-Public Use
  Company Number: US-ALLERGAN-1950416CX

PATIENT
  Sex: Female

DRUGS (9)
  1. ESSENTIAL DEFENSE MINERAL SHIELD BROAD SPECTRUM SPF 35 SUNSCREEN [Suspect]
     Active Substance: TITANIUM DIOXIDE\ZINC OXIDE
     Dosage: 1 PUMP
     Route: 061
     Dates: start: 20191113
  2. SKINMEDICA FACIAL CLEANSER [Suspect]
     Active Substance: COSMETICS
     Dosage: 1 PUMP
     Route: 061
     Dates: start: 20191113
  3. SKINMEDICA LUMIVIVE DAY [Suspect]
     Active Substance: COSMETICS
     Dosage: 1 PUMP
     Route: 061
     Dates: start: 20191113
  4. SKINMEDICA LUMIVIVE NIGHT [Suspect]
     Active Substance: COSMETICS
     Dosage: 1 PUMP
     Route: 061
     Dates: start: 20191113
  5. ELESTRIN [Concomitant]
     Active Substance: ESTRADIOL
     Indication: BLOOD OESTROGEN DECREASED
     Dosage: UNK
     Route: 061
     Dates: start: 201512
  6. XUZAL [Concomitant]
     Active Substance: LEVOCETIRIZINE
     Indication: SEASONAL ALLERGY
     Dosage: 5 MG
     Dates: start: 201712
  7. SKINMEDICA LYTERA 2.0 [Suspect]
     Active Substance: COSMETICS
     Dosage: 1 PUMP
     Route: 061
     Dates: start: 20191113
  8. SKINMEDICA ULTRA SHEER MOISTURIZER [Suspect]
     Active Substance: COSMETICS
     Dosage: 1 PUMP
     Route: 061
     Dates: start: 20191113
  9. HYDROCODONE [Concomitant]
     Active Substance: HYDROCODONE
     Indication: PAIN MANAGEMENT
     Dosage: 325 MG
     Route: 048
     Dates: start: 20191209

REACTIONS (1)
  - Device dislocation [Recovering/Resolving]

NARRATIVE: CASE EVENT DATE: 20191125
